FAERS Safety Report 9718987 (Version 1)
Quarter: 2013Q4

REPORT INFORMATION
  Report Type: Spontaneous
  Country: AU (occurrence: None)
  Receive Date: 20131126
  Receipt Date: 20131126
  Transmission Date: 20140711
  Serious: Yes (Other)
  Sender: FDA-Public Use
  Company Number: 2013P1020639

PATIENT
  Age: 51 Year
  Sex: Female

DRUGS (2)
  1. LITHIUM [Suspect]
     Indication: BIPOLAR DISORDER
     Dosage: 1350 MG; QD;
  2. QUETIAPINE [Concomitant]

REACTIONS (2)
  - Hyperthyroidism [None]
  - Thyroiditis [None]
